FAERS Safety Report 10028455 (Version 1)
Quarter: 2014Q1

REPORT INFORMATION
  Report Type: Spontaneous
  Country: US (occurrence: US)
  Receive Date: 20140321
  Receipt Date: 20140321
  Transmission Date: 20141002
  Serious: Yes (Hospitalization)
  Sender: FDA-Public Use
  Company Number: US-BRISTOL-MYERS SQUIBB COMPANY-20481974

PATIENT
  Age: 80 Year
  Sex: Male

DRUGS (6)
  1. ELIQUIS [Suspect]
  2. ASPIRIN [Concomitant]
  3. CARVEDILOL [Concomitant]
  4. INSULIN [Concomitant]
  5. MEGACE [Concomitant]
  6. ZOFRAN [Concomitant]

REACTIONS (2)
  - Septic shock [Unknown]
  - Large intestine perforation [Unknown]
